FAERS Safety Report 20804890 (Version 2)
Quarter: 2022Q3

REPORT INFORMATION
  Report Type: Report from Study
  Country: US (occurrence: US)
  Receive Date: 20220509
  Receipt Date: 20220805
  Transmission Date: 20221026
  Serious: Yes (Other)
  Sender: FDA-Public Use
  Company Number: US-REGENERON PHARMACEUTICALS, INC.-2022-060410

PATIENT
  Sex: Female

DRUGS (2)
  1. PRALUENT [Suspect]
     Active Substance: ALIROCUMAB
     Indication: Hyperlipidaemia
     Dosage: 75 MG, Q2W
     Route: 058
     Dates: start: 20220311, end: 20220622
  2. PRALUENT [Suspect]
     Active Substance: ALIROCUMAB
     Indication: Hypercholesterolaemia

REACTIONS (15)
  - Neuropathy peripheral [Unknown]
  - Neuropathy peripheral [Unknown]
  - Neuropathy peripheral [Unknown]
  - Cataract [Unknown]
  - Arthralgia [Unknown]
  - Arthralgia [Unknown]
  - Arthralgia [Unknown]
  - Gait disturbance [Unknown]
  - Gait disturbance [Unknown]
  - Gait disturbance [Unknown]
  - Vision blurred [Unknown]
  - Sinus congestion [Unknown]
  - Myalgia [Unknown]
  - Myalgia [Unknown]
  - Myalgia [Unknown]

NARRATIVE: CASE EVENT DATE: 20220101
